FAERS Safety Report 7979691-4 (Version None)
Quarter: 2011Q4

REPORT INFORMATION
  Report Type: 
  Country: None (occurrence: None)
  Receive Date: 20111214
  Receipt Date: 20111207
  Transmission Date: 20120403
  Serious: Yes (Hospitalization)
  Sender: FDA-Public Use
  Company Number: US-ROCHE-1012872

PATIENT
  Sex: Female

DRUGS (1)
  1. XOLAIR [Suspect]
     Indication: ASTHMA
     Route: 048

REACTIONS (4)
  - CHEST DISCOMFORT [None]
  - ANAPHYLACTIC REACTION [None]
  - WHEEZING [None]
  - PARAESTHESIA ORAL [None]
